FAERS Safety Report 8137742-0 (Version None)
Quarter: 2012Q1

REPORT INFORMATION
  Report Type: 
  Country: None (occurrence: None)
  Receive Date: 20120215
  Receipt Date: 20120207
  Transmission Date: 20120608
  Serious: Yes (Hospitalization, Other)
  Sender: FDA-Public Use
  Company Number: US-BAYER-2011-085300

PATIENT
  Age: 21 Year
  Sex: Female
  Weight: 63.492 kg

DRUGS (6)
  1. ALBUTEROL [Concomitant]
     Indication: ASTHMA
     Dosage: UNK
     Dates: start: 19870101
  2. PROAIR HFA [Concomitant]
  3. METHYLPREDNISOLONE [Concomitant]
  4. YAZ [Suspect]
     Indication: CONTRACEPTION
     Dosage: UNK
     Dates: start: 20060101, end: 20090101
  5. EFFEXOR [Concomitant]
     Indication: ANXIETY
     Dosage: 75 MG, UNK
     Dates: start: 20080101, end: 20090101
  6. NASONEX [Concomitant]

REACTIONS (7)
  - CHOLELITHIASIS [None]
  - PANCREATITIS [None]
  - INJURY [None]
  - CHEST PAIN [None]
  - PAIN [None]
  - CHOLECYSTITIS ACUTE [None]
  - FEAR [None]
